FAERS Safety Report 7594256-4 (Version None)
Quarter: 2011Q3

REPORT INFORMATION
  Report Type: 
  Country: None (occurrence: None)
  Receive Date: 20110706
  Receipt Date: 20110706
  Transmission Date: 20111222
  Serious: Yes (Other)
  Sender: FDA-Public Use
  Company Number: None

PATIENT
  Age: 21 Year
  Sex: Female
  Weight: 95.254 kg

DRUGS (2)
  1. ZEOSA NORETHINDRONE [Suspect]
     Indication: MENORRHAGIA
     Dosage: ONE TABLET
     Route: 048
     Dates: start: 20110401, end: 20110524
  2. FERROUS FUMARATE/0.035MG ETHIYL ESTRADIOL [Concomitant]

REACTIONS (6)
  - ASTHENIA [None]
  - HEART RATE INCREASED [None]
  - DIZZINESS [None]
  - ANXIETY [None]
  - NERVOUSNESS [None]
  - THINKING ABNORMAL [None]
